FAERS Safety Report 22313460 (Version 7)
Quarter: 2025Q4

REPORT INFORMATION
  Report Type: Spontaneous
  Country: EU (occurrence: EU)
  Receive Date: 20230512
  Receipt Date: 20251204
  Transmission Date: 20260117
  Serious: Yes (Hospitalization, Other)
  Sender: RANBAXY
  Company Number: EU-SUN PHARMACEUTICAL INDUSTRIES LTD-2023R1-388119

PATIENT
  Age: 49 Year
  Sex: Female

DRUGS (15)
  1. PREGABALIN [Suspect]
     Active Substance: PREGABALIN
     Indication: Diabetic neuropathy
     Dosage: 600 MILLIGRAM, DAILY
     Route: 065
  2. DIPHENHYDRAMINE [Interacting]
     Active Substance: DIPHENHYDRAMINE
     Indication: Depression
     Dosage: 1000 MILLIGRAM
     Route: 065
  3. DIPHENHYDRAMINE [Interacting]
     Active Substance: DIPHENHYDRAMINE
     Indication: Sleep disorder
     Dosage: UNK (TAKEN AT NIGHT)
     Route: 065
  4. DIPHENHYDRAMINE [Interacting]
     Active Substance: DIPHENHYDRAMINE
     Indication: Pain
  5. ACETAMINOPHEN [Interacting]
     Active Substance: ACETAMINOPHEN
     Indication: Depression
     Dosage: 1000 MILLIGRAM, IF NEEDED
     Route: 065
  6. ACETAMINOPHEN [Interacting]
     Active Substance: ACETAMINOPHEN
     Indication: Pain
     Dosage: UNK (1 GRAM,DURING THE DAY)
     Route: 065
  7. ACETAMINOPHEN [Interacting]
     Active Substance: ACETAMINOPHEN
     Indication: Pain
  8. ACETAMINOPHEN [Interacting]
     Active Substance: ACETAMINOPHEN
     Indication: Pain in extremity
  9. ACETAMINOPHEN [Interacting]
     Active Substance: ACETAMINOPHEN
     Indication: Sleep disorder
  10. ACETAMINOPHEN [Interacting]
     Active Substance: ACETAMINOPHEN
     Indication: Pain in extremity
  11. PAROXETINE [Interacting]
     Active Substance: PAROXETINE
     Indication: Depression
     Dosage: 20 MILLIGRAM, DAILY
     Route: 065
  12. PAROXETINE [Interacting]
     Active Substance: PAROXETINE
     Dosage: 40 MILLIGRAM, DAILY
     Route: 065
  13. ALPHA LIPOIC ACID [Concomitant]
     Active Substance: .ALPHA.-LIPOIC ACID
     Indication: Diabetic neuropathy
     Dosage: 600 MILLIGRAM, DAILY
     Route: 065
  14. METFORMIN [Concomitant]
     Active Substance: METFORMIN HYDROCHLORIDE
     Indication: Type 2 diabetes mellitus
     Dosage: 1000 MILLIGRAM, DAILY
     Route: 065
  15. SITAGLIPTIN [Concomitant]
     Active Substance: SITAGLIPTIN
     Indication: Type 2 diabetes mellitus
     Dosage: 100 MILLIGRAM, DAILY
     Route: 065

REACTIONS (9)
  - Pain [Recovering/Resolving]
  - Palpitations [Recovering/Resolving]
  - Drug interaction [Recovering/Resolving]
  - Pain in extremity [Recovering/Resolving]
  - Burning sensation [Recovering/Resolving]
  - Diabetic neuropathy [Recovering/Resolving]
  - Sleep disorder [Recovering/Resolving]
  - Dysaesthesia [Unknown]
  - Drug ineffective [Unknown]
